FAERS Safety Report 10963584 (Version 1)
Quarter: 2015Q1

REPORT INFORMATION
  Report Type: Spontaneous
  Country: US (occurrence: US)
  Receive Date: 20150327
  Receipt Date: 20150327
  Transmission Date: 20150721
  Serious: Yes (Hospitalization, Other)
  Sender: FDA-Public Use
  Company Number: US-ASTRAZENECA-2015SE28319

PATIENT
  Age: 67 Year
  Sex: Male
  Weight: 104.3 kg

DRUGS (8)
  1. XARELTO [Suspect]
     Active Substance: RIVAROXABAN
     Indication: ANTICOAGULANT THERAPY
     Route: 065
  2. SYMBICORT [Suspect]
     Active Substance: BUDESONIDE\FORMOTEROL FUMARATE DIHYDRATE
     Indication: BRONCHITIS
     Dosage: TWO TIMES A DAY
     Route: 055
     Dates: start: 20150319
  3. SYMBICORT [Suspect]
     Active Substance: BUDESONIDE\FORMOTEROL FUMARATE DIHYDRATE
     Indication: EMPHYSEMA
     Dosage: TWO TIMES A DAY
     Route: 055
     Dates: start: 20150319
  4. ELOUIS [Concomitant]
  5. PRADA [Suspect]
     Active Substance: PANTOPRAZOLE SODIUM
     Indication: ANTICOAGULANT THERAPY
     Route: 065
     Dates: start: 201410
  6. OXYCONTIN [Concomitant]
     Active Substance: OXYCODONE HYDROCHLORIDE
     Indication: PAIN
     Route: 065
  7. SYMBICORT [Suspect]
     Active Substance: BUDESONIDE\FORMOTEROL FUMARATE DIHYDRATE
     Indication: BRONCHITIS
     Dosage: 160/4.5 2 PUFFS BID
     Route: 055
     Dates: start: 2013, end: 201412
  8. SYMBICORT [Suspect]
     Active Substance: BUDESONIDE\FORMOTEROL FUMARATE DIHYDRATE
     Indication: EMPHYSEMA
     Dosage: 160/4.5 2 PUFFS BID
     Route: 055
     Dates: start: 2013, end: 201412

REACTIONS (7)
  - Rash [Recovered/Resolved]
  - Cerebrovascular accident [Unknown]
  - Nausea [Unknown]
  - Coagulopathy [Unknown]
  - Blood urine present [Recovered/Resolved]
  - Sleep apnoea syndrome [Unknown]
  - Product use issue [Unknown]

NARRATIVE: CASE EVENT DATE: 2013
